FAERS Safety Report 13060653 (Version 1)
Quarter: 2016Q4

REPORT INFORMATION
  Report Type: Report from Study
  Country: US (occurrence: AU)
  Receive Date: 20161224
  Receipt Date: 20161224
  Transmission Date: 20170207
  Serious: Yes (Other)
  Sender: FDA-Public Use
  Company Number: AU-IPSEN BIOPHARMACEUTICALS, INC.-2016-05524

PATIENT
  Age: 31 Year
  Sex: Female
  Weight: 64 kg

DRUGS (3)
  1. SOMATULINE AUTOGEL [Suspect]
     Active Substance: LANREOTIDE ACETATE
     Indication: ACROMEGALY
     Dosage: 60 MG
     Route: 058
     Dates: start: 20160617, end: 20161010
  2. SOMATULINE AUTOGEL [Suspect]
     Active Substance: LANREOTIDE ACETATE
     Dosage: 60 MG
     Route: 058
     Dates: start: 2016, end: 2016
  3. SOMATULINE AUTOGEL [Suspect]
     Active Substance: LANREOTIDE ACETATE
     Dosage: 60 MG
     Route: 058
     Dates: start: 2016

REACTIONS (20)
  - Abdominal pain [Recovering/Resolving]
  - Abdominal pain [Recovered/Resolved]
  - Dizziness [Recovered/Resolved]
  - Fatigue [Recovering/Resolving]
  - Tremor [Recovering/Resolving]
  - Lethargy [Recovered/Resolved]
  - Nausea [Not Recovered/Not Resolved]
  - Inappropriate schedule of drug administration [Unknown]
  - Blood glucose decreased [Not Recovered/Not Resolved]
  - Night sweats [Recovered/Resolved]
  - Injection site discomfort [Not Recovered/Not Resolved]
  - Decreased appetite [Recovering/Resolving]
  - Disease progression [Recovering/Resolving]
  - Night sweats [Not Recovered/Not Resolved]
  - Muscular weakness [Recovered/Resolved]
  - Abdominal distension [Recovering/Resolving]
  - Abdominal mass [Recovered/Resolved]
  - Diarrhoea [Recovered/Resolved]
  - Intracranial pressure increased [Recovering/Resolving]
  - Laboratory test abnormal [Recovering/Resolving]

NARRATIVE: CASE EVENT DATE: 2016
